FAERS Safety Report 8532017-X (Version None)
Quarter: 2012Q3

REPORT INFORMATION
  Report Type: 
  Country: None (occurrence: None)
  Receive Date: 20120723
  Receipt Date: 20120718
  Transmission Date: 20120928
  Serious: Yes (Disabling, Other)
  Sender: FDA-Public Use
  Company Number: PHHY2012GB061583

PATIENT
  Sex: Female

DRUGS (5)
  1. PREDNISONE [Suspect]
  2. DOXORUBICIN HYDROCHLORIDE [Suspect]
  3. VINCRISTINE [Suspect]
  4. MABTHERA [Suspect]
     Indication: BURKITT'S LYMPHOMA
  5. CYCLOPHOSPHAMIDE [Suspect]

REACTIONS (2)
  - ABASIA [None]
  - MYELOPATHY [None]
